FAERS Safety Report 8477481-X (Version None)
Quarter: 2012Q2

REPORT INFORMATION
  Report Type: 
  Country: None (occurrence: None)
  Receive Date: 20120629
  Receipt Date: 20120627
  Transmission Date: 20120825
  Serious: Yes (Hospitalization)
  Sender: FDA-Public Use
  Company Number: PHHY2012ES055018

PATIENT
  Age: 60 Year
  Sex: Male

DRUGS (1)
  1. IMATINIB MESYLATE [Suspect]
     Indication: PROPHYLAXIS
     Dosage: UNK UKN, UNK
     Route: 048
     Dates: start: 20120215, end: 20120330

REACTIONS (3)
  - CYTOLYTIC HEPATITIS [None]
  - HYPERBILIRUBINAEMIA [None]
  - COAGULOPATHY [None]
